FAERS Safety Report 9639057 (Version 2)
Quarter: 2013Q4

REPORT INFORMATION
  Report Type: Spontaneous
  Country: US (occurrence: US)
  Receive Date: 20131022
  Receipt Date: 20131212
  Transmission Date: 20140711
  Serious: Yes (Death, Hospitalization)
  Sender: FDA-Public Use
  Company Number: US-FRI-1000050335

PATIENT
  Age: 93 Year
  Sex: Female
  Weight: 74 kg

DRUGS (4)
  1. BYSTOLIC [Suspect]
     Indication: HYPERTENSION
     Dosage: 2.5
     Route: 048
     Dates: start: 201207
  2. LIPITOR [Concomitant]
     Indication: HYPERLIPIDAEMIA
     Dosage: 40 MG
     Route: 048
  3. ASA [Concomitant]
     Indication: CAROTID ARTERY DISEASE
     Dosage: 81 MG
     Route: 048
  4. LASIX [Concomitant]
     Indication: CARDIAC FAILURE CONGESTIVE
     Dosage: 40 MG
     Route: 048

REACTIONS (2)
  - Cardiac failure [Fatal]
  - Renal impairment [Fatal]
